FAERS Safety Report 4672434-1 (Version None)
Quarter: 2005Q2

REPORT INFORMATION
  Report Type: 
  Country: None (occurrence: None)
  Receive Date: 20050524
  Receipt Date: 20041019
  Transmission Date: 20051028
  Serious: Yes (Other)
  Sender: FDA-Public Use
  Company Number: 200413951FR

PATIENT
  Age: 64 Year
  Sex: Female
  Weight: 57 kg

DRUGS (32)
  1. ARAVA [Suspect]
     Indication: BK VIRUS INFECTION
     Route: 048
     Dates: start: 20040123, end: 20040228
  2. DI-ANTALVIC [Suspect]
     Route: 048
     Dates: start: 20040117, end: 20040201
  3. OFLOCET [Suspect]
     Dates: start: 20040121, end: 20040201
  4. PROGRAF [Concomitant]
     Route: 048
     Dates: start: 20031110, end: 20040824
  5. CORTANCYL [Concomitant]
     Route: 048
     Dates: start: 20031114
  6. CORDARONE [Concomitant]
     Route: 048
     Dates: start: 20031217
  7. AMLOR [Concomitant]
     Route: 048
     Dates: start: 20010106, end: 20040219
  8. EUPRESSYL [Concomitant]
     Route: 048
     Dates: start: 20040109, end: 20040101
  9. EUTHYRAL [Concomitant]
     Route: 048
     Dates: start: 20040106
  10. TRIFLUCAN [Concomitant]
     Route: 048
     Dates: start: 20040109, end: 20040101
  11. BACTRIM [Concomitant]
     Route: 048
     Dates: start: 20040126, end: 20040101
  12. ZELITREX [Concomitant]
     Dates: start: 20040117, end: 20040101
  13. PROZAC [Concomitant]
     Route: 048
     Dates: start: 20040117, end: 20040201
  14. MOPRAL [Concomitant]
     Route: 048
     Dates: start: 20031217, end: 20040205
  15. CALCIPARINE [Concomitant]
     Route: 058
     Dates: start: 20040106, end: 20040101
  16. NEORECORMON [Concomitant]
     Dates: start: 20040117
  17. PERFALGAN [Concomitant]
     Dates: start: 20040130
  18. RYTHMOL [Concomitant]
     Route: 048
     Dates: start: 20040129, end: 20040220
  19. PRIMPERAN TAB [Concomitant]
     Route: 048
     Dates: start: 20040130, end: 20040206
  20. DEBRIDAT [Concomitant]
     Dates: start: 20040128
  21. AUGMENTIN '125' [Concomitant]
     Dates: start: 20040203
  22. DUPHALAC [Concomitant]
     Dates: start: 20040203
  23. IMOVANE [Concomitant]
     Dates: start: 20040203
  24. EFFEXOR [Concomitant]
     Dates: start: 20040212
  25. DAFALGAN [Concomitant]
     Route: 048
     Dates: start: 20040212
  26. PREVISCAN [Concomitant]
     Route: 048
     Dates: start: 20040331
  27. MYOLASTAN [Concomitant]
     Dates: start: 20040331
  28. SEROPRAM [Concomitant]
     Route: 048
     Dates: start: 20040331
  29. LARGACTIL [Concomitant]
     Dates: start: 20040331
  30. TAHOR [Concomitant]
     Route: 048
     Dates: start: 20040225, end: 20040824
  31. OROKEN [Concomitant]
     Dates: start: 20040825
  32. ROCEPHIN [Concomitant]
     Dates: start: 20040825

REACTIONS (5)
  - ANAEMIA [None]
  - GAMMA-GLUTAMYLTRANSFERASE INCREASED [None]
  - HYPERTENSION [None]
  - RENAL FAILURE [None]
  - THROMBOCYTOPENIA [None]
